FAERS Safety Report 4283187-3 (Version None)
Quarter: 2004Q1

REPORT INFORMATION
  Report Type: 
  Country: None (occurrence: None)
  Receive Date: 20040115
  Receipt Date: 20040108
  Transmission Date: 20041129
  Serious: Yes (Other)
  Sender: FDA-Public Use
  Company Number: HQ2469528MAY2002

PATIENT
  Age: 17 Year
  Sex: Male

DRUGS (1)
  1. BENEFIX [Suspect]
     Indication: FACTOR IX DEFICIENCY
     Dosage: 500 IU X 2 VIALS TWICE A WEEK, INTRAVENOUS
     Route: 042
     Dates: start: 20020201, end: 20020401

REACTIONS (2)
  - DRUG INEFFECTIVE [None]
  - HAEMATURIA [None]
